FAERS Safety Report 8771465 (Version 2)
Quarter: 2012Q4

REPORT INFORMATION
  Report Type: 
  Country: BE (occurrence: NO)
  Receive Date: 20120906
  Receipt Date: 20120906
  Transmission Date: 20130627
  Serious: Yes (Hospitalization)
  Sender: FDA-Public Use
  Company Number: NO-JNJFOC-2007329510

PATIENT
  Sex: Female

DRUGS (7)
  1. CETIRIZINE HYDROCHLORIDE [Suspect]
     Route: 065
  2. CETIRIZINE HYDROCHLORIDE [Suspect]
     Indication: FOOD ALLERGY
     Dosage: Daily Dose Text: NI
     Route: 065
     Dates: start: 20030514, end: 20031019
  3. LEVOCETIRIZINE DIHYDROCHLORIDE [Suspect]
     Indication: FOOD ALLERGY
     Dosage: Daily Dose Text: 5 MG
     Route: 065
     Dates: start: 20031020, end: 20040428
  4. ESCITALOPRAM [Concomitant]
     Indication: ANXIETY
     Dosage: Daily Dose Text: UNSPECIFIED
     Route: 065
     Dates: end: 20040427
  5. OXAZEPAM [Concomitant]
     Indication: ANXIETY
     Dates: start: 20040329, end: 20040412
  6. OXAZEPAM [Concomitant]
     Indication: ANXIETY
     Dates: start: 20030514, end: 20031019
  7. OXAZEPAM [Concomitant]
     Indication: ANXIETY
     Dates: start: 20031020, end: 20040428

REACTIONS (14)
  - Suicidal ideation [Recovered/Resolved]
  - Panic disorder [Recovering/Resolving]
  - Eating disorder [Recovering/Resolving]
  - Weight decreased [Recovering/Resolving]
  - Feeling abnormal [Recovered/Resolved]
  - Dry mouth [Recovered/Resolved]
  - Hypogeusia [Recovered/Resolved]
  - Heart rate increased [Recovering/Resolving]
  - Disturbance in attention [Recovering/Resolving]
  - Parosmia [Recovered/Resolved]
  - Liver disorder [Recovered/Resolved]
  - Chills [Recovered/Resolved]
  - Feeling hot [Recovered/Resolved]
  - Urinary tract infection [Recovered/Resolved]
